FAERS Safety Report 7943554-0 (Version None)
Quarter: 2011Q4

REPORT INFORMATION
  Report Type: 
  Country: None (occurrence: None)
  Receive Date: 20111128
  Receipt Date: 20100602
  Transmission Date: 20120403
  Serious: Yes (Hospitalization, Other)
  Sender: FDA-Public Use
  Company Number: PHHY2010TW38766

PATIENT
  Sex: Female

DRUGS (2)
  1. SPRYCEL [Suspect]
     Dosage: 50 MG, UNK
  2. GLEEVEC [Suspect]
     Indication: CHRONIC MYELOID LEUKAEMIA
     Dosage: 400 MG, UNK
     Route: 048
     Dates: start: 20100408

REACTIONS (4)
  - OEDEMA PERIPHERAL [None]
  - MENSTRUATION IRREGULAR [None]
  - CENTRAL NERVOUS SYSTEM LESION [None]
  - WHITE BLOOD CELL COUNT ABNORMAL [None]
